FAERS Safety Report 5423975-0 (Version None)
Quarter: 2007Q3

REPORT INFORMATION
  Report Type: 
  Country: None (occurrence: None)
  Receive Date: 20070727
  Receipt Date: 20060723
  Transmission Date: 20080115
  Serious: Yes (Other)
  Sender: FDA-Public Use
  Company Number: THYM-11021

PATIENT
  Age: 38 Year
  Sex: Male

DRUGS (4)
  1. RABBIT ATG [Suspect]
     Indication: APLASTIC ANAEMIA
     Dosage: 3.5 MG/KG QD IV
     Route: 042
     Dates: start: 20030101, end: 20030101
  2. HORSE ATG [Suspect]
     Indication: APLASTIC ANAEMIA
     Dosage: 3.5 MG/KG QD IV
     Route: 042
     Dates: start: 20040201
  3. METHYLPREDNISOLONE 16MG TAB [Concomitant]
  4. CYCLOSPORINE [Concomitant]

REACTIONS (1)
  - EPSTEIN-BARR VIRUS INFECTION [None]
